FAERS Safety Report 9473444 (Version 1)
Quarter: 2013Q3

REPORT INFORMATION
  Report Type: Spontaneous
  Country: US (occurrence: US)
  Receive Date: 20130823
  Receipt Date: 20130823
  Transmission Date: 20140515
  Serious: Yes (Other)
  Sender: FDA-Public Use
  Company Number: US-BRISTOL-MYERS SQUIBB COMPANY-18994483

PATIENT
  Age: 62 Year
  Sex: Female
  Weight: 73.47 kg

DRUGS (8)
  1. SPRYCEL (CML) TABS 50 MG [Suspect]
     Indication: CHRONIC MYELOID LEUKAEMIA
     Dosage: TABS?LAST DOSE:04JUN13
     Route: 048
  2. LISINOPRIL [Concomitant]
     Dosage: TABS
  3. MELOXICAM [Concomitant]
     Dosage: TABS
  4. FUROSEMIDE [Concomitant]
     Dosage: TABS
  5. LIPITOR [Concomitant]
     Dosage: TABS
  6. MULTIVITAMIN [Concomitant]
     Dosage: CAPS
  7. BIOTIN [Concomitant]
     Dosage: CAPS
  8. VITAMIN C [Concomitant]
     Dosage: CAPS

REACTIONS (1)
  - Pleural effusion [Unknown]
